FAERS Safety Report 16714671 (Version 6)
Quarter: 2021Q1

REPORT INFORMATION
  Report Type: Report from Study
  Country: AU (occurrence: AU)
  Receive Date: 20190819
  Receipt Date: 20210330
  Transmission Date: 20210419
  Serious: Yes (Death)
  Sender: FDA-Public Use
  Company Number: AU-TOLMAR, INC.-2019AU008581

PATIENT
  Sex: Male

DRUGS (4)
  1. XTANDI [Concomitant]
     Active Substance: ENZALUTAMIDE
     Indication: PRODUCT USED FOR UNKNOWN INDICATION
     Dosage: UNK
     Route: 065
  2. DENOSUMAB [Concomitant]
     Active Substance: DENOSUMAB
     Indication: BONE PAIN
  3. ELIGARD [Suspect]
     Active Substance: LEUPROLIDE ACETATE
     Indication: PROSTATE CANCER
     Dosage: 22.5 MG, Q 3 MONTH
     Route: 058
     Dates: start: 20180807
  4. XARELTO [Concomitant]
     Active Substance: RIVAROXABAN
     Indication: PRODUCT USED FOR UNKNOWN INDICATION
     Dosage: UNK
     Route: 065

REACTIONS (7)
  - Nasopharyngitis [Unknown]
  - Pain [Not Recovered/Not Resolved]
  - Death [Fatal]
  - Pain in jaw [Unknown]
  - Bone pain [Recovered/Resolved]
  - Fatigue [Unknown]
  - Weight decreased [Unknown]

NARRATIVE: CASE EVENT DATE: 2019
